FAERS Safety Report 10803627 (Version 4)
Quarter: 2015Q2

REPORT INFORMATION
  Report Type: Report from Study
  Country: JP (occurrence: JP)
  Receive Date: 20150217
  Receipt Date: 20150602
  Transmission Date: 20150821
  Serious: Yes (Death)
  Sender: FDA-Public Use
  Company Number: JP-MUNDIPHARMA DS AND PHARMACOVIGILANCE-DEU-2015-0016321

PATIENT
  Age: 87 Year
  Sex: Female
  Weight: 41.1 kg

DRUGS (14)
  1. KETAS [Concomitant]
     Active Substance: IBUDILAST
     Indication: CEREBRAL CIRCULATORY FAILURE
     Dosage: 30 MG, DAILY
     Route: 048
  2. CEPHADOL [Concomitant]
     Active Substance: DIPHENIDOL HYDROCHLORIDE
     Indication: CEREBRAL CIRCULATORY FAILURE
     Dosage: 75 MG, DAILY
     Route: 048
  3. PURSENNID                          /00571902/ [Concomitant]
     Active Substance: SENNOSIDES A AND B
     Indication: CONSTIPATION
     Dosage: 24 MG, DAILY
     Route: 048
  4. ADETPHOS [Concomitant]
     Active Substance: ADENOSINE TRIPHOSPHATE
     Indication: CEREBRAL CIRCULATORY FAILURE
     Dosage: 300 MG, DAILY
     Route: 048
  5. BAYASPIRIN [Concomitant]
     Active Substance: ASPIRIN
     Indication: ATRIAL FIBRILLATION
     Dosage: 100 MG, DAILY
     Route: 048
     Dates: start: 20120525
  6. PREDONINE [Concomitant]
     Active Substance: PREDNISOLONE\PREDNISOLONE ACETATE\PREDNISOLONE SODIUM SUCCINATE
     Dosage: 7 MG, DAILY
     Route: 048
     Dates: start: 20120525
  7. VASOLAN                            /00014302/ [Concomitant]
     Active Substance: VERAPAMIL HYDROCHLORIDE
     Indication: ATRIAL FIBRILLATION
     Dosage: 80 MG, DAILY
     Route: 048
     Dates: start: 20120525
  8. BTDS 5 MG [Suspect]
     Active Substance: BUPRENORPHINE
     Indication: SPINAL OPERATION
  9. LIPOVAS                            /00848101/ [Concomitant]
     Active Substance: SIMVASTATIN
     Dosage: 5 MG, DAILY
     Route: 048
     Dates: start: 20120525
  10. AMLODIN [Concomitant]
     Active Substance: AMLODIPINE BESYLATE
     Indication: HYPERTENSION
     Dosage: 5 MG, DAILY
     Route: 048
     Dates: start: 20120525
  11. NU LOTAN [Concomitant]
     Active Substance: LOSARTAN
     Indication: HYPERTENSION
     Dosage: 25 MG, DAILY
     Route: 048
     Dates: start: 20120525
  12. BTDS 5 MG [Suspect]
     Active Substance: BUPRENORPHINE
     Indication: BACK PAIN
     Dosage: 5 MCG, Q1H
     Route: 062
     Dates: start: 20120525, end: 20130423
  13. WARFARIN K [Concomitant]
     Active Substance: WARFARIN POTASSIUM
     Indication: ATRIAL FIBRILLATION
     Dosage: 2.25 MG, DAILY
     Route: 048
     Dates: start: 20120525
  14. ADETPHOS [Concomitant]
     Active Substance: ADENOSINE TRIPHOSPHATE
     Indication: ATRIAL FIBRILLATION

REACTIONS (1)
  - Interstitial lung disease [Fatal]

NARRATIVE: CASE EVENT DATE: 20130310
